FAERS Safety Report 6897014-9 (Version None)
Quarter: 2010Q3

REPORT INFORMATION
  Report Type: 
  Country: None (occurrence: None)
  Receive Date: 20100802
  Receipt Date: 20070521
  Transmission Date: 20110219
  Serious: No
  Sender: FDA-Public Use
  Company Number: US-PFIZER INC-2006148009

PATIENT
  Sex: Female
  Weight: 77.11 kg

DRUGS (5)
  1. LYRICA [Suspect]
     Indication: PAIN IN EXTREMITY
  2. ANTIHYPERTENSIVES [Concomitant]
  3. BENICAR [Concomitant]
  4. THYROID TAB [Concomitant]
  5. ATENOLOL [Concomitant]

REACTIONS (1)
  - DEPRESSION [None]
